FAERS Safety Report 14601555 (Version 5)
Quarter: 2018Q2

REPORT INFORMATION
  Report Type: Spontaneous
  Country: JP (occurrence: JP)
  Receive Date: 20180306
  Receipt Date: 20180507
  Transmission Date: 20180711
  Serious: Yes (Hospitalization)
  Sender: FDA-Public Use
  Company Number: JP-ROCHE-2081646

PATIENT
  Age: 83 Year
  Sex: Female
  Weight: 40 kg

DRUGS (6)
  1. TAMIFLU [Suspect]
     Active Substance: OSELTAMIVIR PHOSPHATE
     Indication: ANTIVIRAL PROPHYLAXIS
     Route: 048
     Dates: start: 20180218, end: 20180220
  2. BISOPROLOL FUMARATE. [Concomitant]
     Active Substance: BISOPROLOL FUMARATE
     Dosage: DOSE INTERVAL UNCERTAINTY
     Route: 048
  3. LUNESTA [Concomitant]
     Active Substance: ESZOPICLONE
     Dosage: DOSE INTERVAL UNCERTAINTY
     Route: 048
     Dates: start: 20180124
  4. FEBURIC [Concomitant]
     Active Substance: FEBUXOSTAT
     Dosage: DOSE INTERVAL UNCERTAINTY
     Route: 048
  5. ARICEPT [Concomitant]
     Active Substance: DONEPEZIL HYDROCHLORIDE
     Dosage: DOSE INTERVAL UNCERTAINTY
     Route: 048
     Dates: start: 20180112, end: 20180221
  6. HALFDIGOXIN [Concomitant]
     Active Substance: DIGOXIN
     Dosage: DOSE INTERVAL UNCERTAINTY
     Route: 048

REACTIONS (2)
  - Headache [Recovered/Resolved]
  - Mental disorder [Not Recovered/Not Resolved]

NARRATIVE: CASE EVENT DATE: 20180219
